FAERS Safety Report 6628696-4 (Version None)
Quarter: 2010Q1

REPORT INFORMATION
  Report Type: 
  Country: None (occurrence: None)
  Receive Date: 20100311
  Receipt Date: 20100301
  Transmission Date: 20100710
  Serious: Yes (Other)
  Sender: FDA-Public Use
  Company Number: MX-ELI_LILLY_AND_COMPANY-MX200906006567

PATIENT
  Age: 36 Year
  Sex: Female
  Weight: 86 kg

DRUGS (6)
  1. HUMALOG MIX 75/25 [Suspect]
     Indication: GESTATIONAL DIABETES
     Dosage: 18 IU, EACH MORNING
     Route: 058
     Dates: start: 20090626, end: 20090701
  2. HUMALOG MIX 75/25 [Suspect]
     Dosage: 10 IU, EACH EVENING
     Route: 058
     Dates: start: 20090626, end: 20090701
  3. METFORMIN [Concomitant]
     Indication: DIABETES MELLITUS
     Dosage: UNK, EACH MORNING
     Route: 048
  4. METFORMIN [Concomitant]
     Dosage: UNK, EACH EVENING
     Route: 048
  5. GLIBENCLAMIDE [Concomitant]
     Indication: DIABETES MELLITUS
     Dosage: UNK, EACH MORNING
     Route: 048
  6. GLIBENCLAMIDE [Concomitant]
     Dosage: UNK, EACH EVENING
     Route: 048
     Dates: start: 20090601

REACTIONS (2)
  - ABORTION SPONTANEOUS [None]
  - DRUG EXPOSURE DURING PREGNANCY [None]
